FAERS Safety Report 16770960 (Version 3)
Quarter: 2019Q3

REPORT INFORMATION
  Report Type: Report from Study
  Country: CA (occurrence: CA)
  Receive Date: 20190904
  Receipt Date: 20190913
  Transmission Date: 20191005
  Serious: Yes (Hospitalization, Other)
  Sender: FDA-Public Use
  Company Number: CA-SA-2018SA134452

PATIENT
  Age: 36 Year
  Sex: Female

DRUGS (27)
  1. ACYCLOVIR ABBOTT VIAL [Concomitant]
     Indication: PREMEDICATION
     Dosage: 200 MG, BID
     Route: 048
     Dates: start: 20180507
  2. ZOPICLONE [Concomitant]
     Active Substance: ZOPICLONE
     Dosage: 3.75 MG, PRN
     Route: 048
  3. BENADRYL [Concomitant]
     Active Substance: DIPHENHYDRAMINE HYDROCHLORIDE
     Indication: PREMEDICATION
     Dosage: 50 MG,UNK
     Route: 048
     Dates: start: 20180507, end: 20180509
  4. WELLBUTRIN [Concomitant]
     Active Substance: BUPROPION HYDROCHLORIDE
     Indication: PANIC DISORDER
     Dosage: UNK UNK, UNK
     Route: 048
  5. JANUMET [Concomitant]
     Active Substance: METFORMIN HYDROCHLORIDE\SITAGLIPTIN PHOSPHATE
     Indication: TYPE 2 DIABETES MELLITUS
     Dosage: UNK UNK, UNK
     Route: 048
  6. SITAGLIPTIN [Concomitant]
     Active Substance: SITAGLIPTIN
     Dosage: 50 MG, BID
     Route: 048
  7. COD LIVER OIL [Concomitant]
     Active Substance: COD LIVER OIL
     Dosage: UNK UNK, UNK
     Route: 048
  8. VITAMIN D NOS [Concomitant]
     Active Substance: VITAMIN D NOS
     Indication: SUPPLEMENTATION THERAPY
     Dosage: 2000 UNKNOWN UNITS
     Route: 048
  9. MELATONIN [Concomitant]
     Active Substance: MELATONIN
     Dosage: UNK UNK,PRN
     Route: 048
  10. METHYLPREDNISOLONE. [Suspect]
     Active Substance: METHYLPREDNISOLONE
     Indication: PREMEDICATION
     Dosage: 1 G, UNK
     Route: 042
     Dates: start: 20180507, end: 20180509
  11. PARACETAMOL [Concomitant]
     Active Substance: ACETAMINOPHEN
     Indication: PREMEDICATION
     Dosage: 650-975MG,PRN
     Route: 048
     Dates: start: 20180507
  12. TRANEXAMIC ACID. [Concomitant]
     Active Substance: TRANEXAMIC ACID
     Dosage: 1000 MG, TID
     Route: 048
  13. ALEMTUZUMAB [Suspect]
     Active Substance: ALEMTUZUMAB
     Indication: RELAPSING-REMITTING MULTIPLE SCLEROSIS
     Dosage: 12 MG,QD
     Route: 041
     Dates: start: 20180507, end: 20180509
  14. CRESTOR [Concomitant]
     Active Substance: ROSUVASTATIN CALCIUM
     Indication: BLOOD CHOLESTEROL INCREASED
     Dosage: UNK UNK, UNK
     Route: 048
  15. ACICLOVIR [Suspect]
     Active Substance: ACYCLOVIR
     Indication: PREMEDICATION
     Dosage: 200 MG,BID
     Route: 048
     Dates: start: 20180507, end: 20180608
  16. GRAVOL [Concomitant]
     Active Substance: DIMENHYDRINATE
     Indication: PREMEDICATION
     Dosage: 50 MG,PRN
     Route: 048
     Dates: start: 20180507
  17. LORAZEPAM. [Concomitant]
     Active Substance: LORAZEPAM
     Dosage: 0.5 MG, QD
     Route: 048
  18. PAROXETINE. [Concomitant]
     Active Substance: PAROXETINE
     Dosage: 50 MG, QD
     Route: 048
  19. CIMETIDINE [Concomitant]
     Active Substance: CIMETIDINE
     Indication: PREMEDICATION
     Dosage: 200 MG,BID
     Route: 048
     Dates: start: 20180509
  20. PIROXICAM. [Concomitant]
     Active Substance: PIROXICAM
     Dosage: UNK UNK,QD
     Route: 048
  21. LOLO [Concomitant]
     Active Substance: ETHINYL ESTRADIOL\NORETHINDRONE ACETATE
     Indication: ORAL CONTRACEPTION
     Dosage: UNK UNK, UNK
     Route: 048
  22. CBD OIL [Concomitant]
     Active Substance: CANNABIDIOL\HERBALS
     Dosage: UNK UNK, UNK
     Route: 065
  23. PAXIL [Concomitant]
     Active Substance: PAROXETINE HYDROCHLORIDE
     Indication: PANIC DISORDER
     Dosage: UNK, UNK
     Route: 048
  24. METFORMIN [Concomitant]
     Active Substance: METFORMIN HYDROCHLORIDE
     Dosage: 500 MG, BID
     Route: 048
  25. ATIVAN [Concomitant]
     Active Substance: LORAZEPAM
     Indication: RESTLESS LEGS SYNDROME
     Dosage: UNK UNK,PRN
     Route: 048
     Dates: start: 20180507
  26. NEXIUM I.V. [Concomitant]
     Active Substance: ESOMEPRAZOLE SODIUM
     Indication: GASTROOESOPHAGEAL REFLUX DISEASE
     Dosage: UNK UNK, UNK
     Route: 048
  27. ESOMEPRAZOLE. [Concomitant]
     Active Substance: ESOMEPRAZOLE MAGNESIUM
     Dosage: 40 MG, QD
     Route: 048

REACTIONS (53)
  - Immune thrombocytopenic purpura [Unknown]
  - Urine ketone body present [Recovered/Resolved]
  - Neutrophil count increased [Not Recovered/Not Resolved]
  - Tri-iodothyronine free decreased [Unknown]
  - Urine leukocyte esterase positive [Recovered/Resolved]
  - Insomnia [Not Recovered/Not Resolved]
  - Alanine aminotransferase increased [Unknown]
  - Glycosylated haemoglobin increased [Unknown]
  - Contusion [Recovered/Resolved]
  - Red cell distribution width increased [Recovered/Resolved]
  - Influenza [Recovered/Resolved]
  - Nausea [Not Recovered/Not Resolved]
  - Headache [Not Recovered/Not Resolved]
  - Tachycardia [Recovered/Resolved]
  - Dyspepsia [Recovering/Resolving]
  - Infusion site warmth [Recovered/Resolved]
  - Fatigue [Recovered/Resolved]
  - Platelet count decreased [Recovering/Resolving]
  - Meningitis aseptic [Recovered/Resolved]
  - Basophil count increased [Recovered/Resolved]
  - Proteinuria [Recovered/Resolved]
  - Lymphocyte count decreased [Recovered/Resolved]
  - Gastroenteritis viral [Recovered/Resolved]
  - Infusion site scar [Recovered/Resolved]
  - Infusion site rash [Recovered/Resolved]
  - Condition aggravated [Not Recovered/Not Resolved]
  - Rash papular [Recovered/Resolved]
  - Haematochezia [Recovered/Resolved]
  - Headache [Recovered/Resolved]
  - Feeling hot [Recovered/Resolved]
  - Urine abnormality [Not Recovered/Not Resolved]
  - Bacterial test positive [Not Recovered/Not Resolved]
  - Infusion site swelling [Recovered/Resolved]
  - Infusion site discomfort [Not Recovered/Not Resolved]
  - Infusion site pruritus [Recovered/Resolved]
  - Poor venous access [Recovered/Resolved]
  - Vision blurred [Recovered/Resolved]
  - Diarrhoea [Recovered/Resolved]
  - Flushing [Recovered/Resolved]
  - Blood urine present [Not Recovered/Not Resolved]
  - Sinusitis [Recovered/Resolved]
  - Eye pain [Recovering/Resolving]
  - Tooth fracture [Recovering/Resolving]
  - Anxiety [Recovering/Resolving]
  - Abdominal pain [Recovered/Resolved]
  - Erythema [Recovered/Resolved]
  - Neck pain [Recovered/Resolved]
  - White blood cell count increased [Not Recovered/Not Resolved]
  - Urinary tract infection [Recovered/Resolved]
  - Eosinophil count increased [Not Recovered/Not Resolved]
  - Blood thyroid stimulating hormone increased [Recovered/Resolved]
  - Infusion site pain [Recovered/Resolved]
  - Blood glucose increased [Unknown]

NARRATIVE: CASE EVENT DATE: 2018
